FAERS Safety Report 24701453 (Version 3)
Quarter: 2025Q1

REPORT INFORMATION
  Report Type: Spontaneous
  Country: US (occurrence: US)
  Receive Date: 20241205
  Receipt Date: 20250312
  Transmission Date: 20250408
  Serious: Yes (Hospitalization, Other)
  Sender: SANOFI AVENTIS
  Company Number: US-SA-2024SA358947

PATIENT
  Age: 82 Year
  Sex: Female
  Weight: 39.55 kg

DRUGS (12)
  1. DUPIXENT [Suspect]
     Active Substance: DUPILUMAB
     Indication: Dermatitis atopic
     Dosage: 300 MG, QOW
     Route: 058
     Dates: start: 202102
  2. RISEDRONATE SODIUM [Concomitant]
     Active Substance: RISEDRONATE SODIUM
  3. KERENDIA [Concomitant]
     Active Substance: FINERENONE
  4. Beet root [Concomitant]
  5. HYDROCHLOROTHIAZIDE\VALSARTAN [Concomitant]
     Active Substance: HYDROCHLOROTHIAZIDE\VALSARTAN
  6. VITAMIN B COMPLEX [Concomitant]
     Active Substance: CYANOCOBALAMIN\DEXPANTHENOL\NIACINAMIDE\PYRIDOXINE HYDROCHLORIDE\RIBOFLAVIN 5^-PHOSPHATE SODIUM\THIA
  7. VITAMIN D NOS [Concomitant]
     Active Substance: CHOLECALCIFEROL\ERGOCALCIFEROL
  8. NIFEDIPINE [Concomitant]
     Active Substance: NIFEDIPINE
  9. VITAMINS [Concomitant]
     Active Substance: VITAMINS
  10. ROCKLATAN [Concomitant]
     Active Substance: LATANOPROST\NETARSUDIL MESYLATE
  11. XARELTO [Concomitant]
     Active Substance: RIVAROXABAN
  12. DORZOLAMIDE [Concomitant]
     Active Substance: DORZOLAMIDE

REACTIONS (4)
  - Hip fracture [Unknown]
  - Fall [Unknown]
  - Blindness unilateral [Unknown]
  - Intraocular pressure increased [Unknown]
